FAERS Safety Report 6169726-6 (Version None)
Quarter: 2009Q2

REPORT INFORMATION
  Report Type: 
  Country: None (occurrence: None)
  Receive Date: 20090424
  Receipt Date: 20090210
  Transmission Date: 20091009
  Serious: No
  Sender: FDA-Public Use
  Company Number: ALL1-2009-00363

PATIENT
  Age: 5 Year
  Sex: Female

DRUGS (1)
  1. VYVANSE [Suspect]
     Dosage: ORAL
     Route: 048

REACTIONS (2)
  - OFF LABEL USE [None]
  - RETCHING [None]
